FAERS Safety Report 12200164 (Version 2)
Quarter: 2016Q1

REPORT INFORMATION
  Report Type: Spontaneous
  Country: US (occurrence: US)
  Receive Date: 20160322
  Receipt Date: 20160330
  Transmission Date: 20160526
  Serious: Yes (Other)
  Sender: FDA-Public Use
  Company Number: US-LUNDBECK-DKLU2011278

PATIENT
  Sex: Female

DRUGS (5)
  1. ONFI [Suspect]
     Active Substance: CLOBAZAM
     Route: 065
     Dates: start: 201403
  2. ONFI [Suspect]
     Active Substance: CLOBAZAM
     Route: 065
  3. ZONEGRAN [Concomitant]
     Active Substance: ZONISAMIDE
     Indication: PRODUCT USED FOR UNKNOWN INDICATION
     Route: 065
  4. ONFI [Suspect]
     Active Substance: CLOBAZAM
     Indication: INFANTILE SPASMS
     Route: 065
     Dates: start: 201403
  5. ONFI [Suspect]
     Active Substance: CLOBAZAM
     Route: 065

REACTIONS (1)
  - Seizure [Unknown]
